FAERS Safety Report 22541175 (Version 8)
Quarter: 2023Q4

REPORT INFORMATION
  Report Type: Report from Study
  Country: US (occurrence: US)
  Receive Date: 20230609
  Receipt Date: 20231208
  Transmission Date: 20240110
  Serious: No
  Sender: FDA-Public Use
  Company Number: US-002147023-NVSC2023US131152

PATIENT
  Sex: Female

DRUGS (2)
  1. KISQALI [Suspect]
     Active Substance: RIBOCICLIB
     Indication: Breast cancer
     Dosage: 600 MG, QD
     Route: 048
     Dates: start: 202305
  2. KISQALI [Suspect]
     Active Substance: RIBOCICLIB
     Dosage: 400 MG, QD
     Route: 048

REACTIONS (12)
  - Anxiety [Unknown]
  - Neoplasm [Unknown]
  - Abdominal pain upper [Recovering/Resolving]
  - Fatigue [Unknown]
  - White blood cell count decreased [Unknown]
  - Dyspepsia [Recovering/Resolving]
  - Constipation [Unknown]
  - Decreased appetite [Unknown]
  - Alopecia [Recovering/Resolving]
  - Dyspnoea [Unknown]
  - Depressed mood [Unknown]
  - Gastrooesophageal reflux disease [Unknown]
